FAERS Safety Report 20429922 (Version 1)
Quarter: 2022Q1

REPORT INFORMATION
  Report Type: Report from Study
  Country: US (occurrence: US)
  Receive Date: 20220204
  Receipt Date: 20220204
  Transmission Date: 20220423
  Serious: Yes (Hospitalization, Other)
  Sender: FDA-Public Use
  Company Number: US-SERVIER-S19002111

PATIENT

DRUGS (5)
  1. ONCASPAR [Suspect]
     Active Substance: PEGASPARGASE
     Indication: Acute lymphocytic leukaemia
     Dosage: 1700- 2500 IU/M2 IV EVERY 2 WEEKS UNTIL 15 POST-INDUCTION DOSES
     Route: 042
     Dates: start: 20170703
  2. DEXAMETHASONE [Suspect]
     Active Substance: DEXAMETHASONE
     Indication: Acute lymphocytic leukaemia
     Dosage: 6 MG/M2/DAY ORALLY DAYS 1-5 OF EACH 3-WEEK CYCLE
     Route: 048
     Dates: start: 20170628
  3. MERCAPTOPURINE [Suspect]
     Active Substance: MERCAPTOPURINE
     Indication: Acute lymphocytic leukaemia
     Dosage: 50 MG/M2 ORALLY DAYS 1-14 OF EACH 3-WEEK CYCLE
     Route: 048
     Dates: start: 20170802
  4. VINCRISTINE [Suspect]
     Active Substance: VINCRISTINE
     Indication: Acute lymphocytic leukaemia
     Dosage: 2 MG/M2 IV ON DAY 1 OF EACH 3-WEEK CYCLE
     Route: 042
     Dates: start: 20170701
  5. METHOTREXATE [Suspect]
     Active Substance: METHOTREXATE
     Indication: Acute lymphocytic leukaemia
     Dosage: 30 MG/M2 IV ON DAYS 1, 8, 15 OF EACH 3-WEEK CYCLE
     Route: 042
     Dates: start: 20170825

REACTIONS (1)
  - Device related infection [Recovered/Resolved]

NARRATIVE: CASE EVENT DATE: 20171113
